FAERS Safety Report 15492007 (Version 3)
Quarter: 2025Q3

REPORT INFORMATION
  Report Type: Report from Study
  Country: EU (occurrence: EU)
  Receive Date: 20181012
  Receipt Date: 20250709
  Transmission Date: 20251020
  Serious: Yes (Hospitalization, Other)
  Sender: AUROBINDO
  Company Number: EU-AUROBINDO-AUR-APL-2018-050485

PATIENT
  Age: 48 Year
  Sex: Male

DRUGS (6)
  1. ROPINIROLE [Suspect]
     Active Substance: ROPINIROLE
     Indication: Parkinson^s disease
     Dosage: 20 MILLIGRAM, ONCE A DAY
     Route: 065
  2. ENTACAPONE [Suspect]
     Active Substance: ENTACAPONE
     Indication: Parkinson^s disease
     Dosage: 1000 MILLIGRAM, ONCE A DAY
     Route: 065
  3. AMANTADINE HYDROCHLORIDE [Suspect]
     Active Substance: AMANTADINE HYDROCHLORIDE
     Indication: Parkinson^s disease
     Dosage: 200 MILLIGRAM, ONCE A DAY
     Route: 065
  4. PERGOLIDE [Suspect]
     Active Substance: PERGOLIDE
     Indication: Parkinson^s disease
     Route: 065
  5. SELEGILINE [Suspect]
     Active Substance: SELEGILINE
     Indication: Parkinson^s disease
     Dosage: 10 MILLIGRAM, ONCE A DAY
     Route: 065
  6. CARBIDOPA\LEVODOPA [Suspect]
     Active Substance: CARBIDOPA\LEVODOPA
     Indication: Parkinson^s disease
     Dosage: 300 MILLIGRAM, ONCE A DAY
     Route: 048

REACTIONS (4)
  - Dopamine dysregulation syndrome [Recovered/Resolved]
  - Hypersexuality [Recovered/Resolved]
  - Drug abuse [Recovered/Resolved]
  - Gambling disorder [Recovered/Resolved]
